FAERS Safety Report 10418266 (Version 1)
Quarter: 2014Q3

REPORT INFORMATION
  Report Type: Spontaneous
  Country: US (occurrence: None)
  Receive Date: 20140827
  Receipt Date: 20140827
  Transmission Date: 20150326
  Serious: Yes (Life-Threatening)
  Sender: FDA-Public Use
  Company Number: 2499263

PATIENT
  Sex: Female

DRUGS (1)
  1. VANCOMYCIN HYDROCHLORIDE FOR INJECTION  USP (VANCOMYCIN HYDROCHLORIDE) [Suspect]
     Active Substance: VANCOMYCIN HYDROCHLORIDE
     Dosage: ONE DOSE
     Route: 042

REACTIONS (2)
  - Anaphylactic reaction [None]
  - Respiratory arrest [None]
